FAERS Safety Report 13693234 (Version 1)
Quarter: 2017Q2

REPORT INFORMATION
  Report Type: Report from Study
  Country: US (occurrence: US)
  Receive Date: 20170627
  Receipt Date: 20170627
  Transmission Date: 20170830
  Serious: Yes (Other)
  Sender: FDA-Public Use
  Company Number: PHEH2013US014353

PATIENT
  Age: 20 Year
  Sex: Male

DRUGS (6)
  1. DIASTAT [Concomitant]
     Active Substance: DIAZEPAM
  2. AFINITOR [Suspect]
     Active Substance: EVEROLIMUS
     Indication: ASTROCYTOMA, LOW GRADE
     Dosage: 10 MG, QD
     Route: 048
     Dates: start: 20130309, end: 20130729
  3. DEPAKOTE [Concomitant]
     Active Substance: DIVALPROEX SODIUM
  4. KEPPRA [Concomitant]
     Active Substance: LEVETIRACETAM
  5. LAMICTAL [Concomitant]
     Active Substance: LAMOTRIGINE
  6. AFINITOR [Suspect]
     Active Substance: EVEROLIMUS
     Indication: GANGLIOGLIOMA
     Dosage: 5 MG, QD
     Route: 048
     Dates: start: 20140127, end: 20140315

REACTIONS (8)
  - Oxygen saturation decreased [Unknown]
  - Blood pressure decreased [Unknown]
  - Neoplasm progression [Unknown]
  - Oral pain [Unknown]
  - Viral upper respiratory tract infection [Unknown]
  - Stomatitis [Recovered/Resolved]
  - Immune system disorder [Unknown]
  - Pneumonia [Unknown]

NARRATIVE: CASE EVENT DATE: 20130729
